FAERS Safety Report 8370776-X (Version None)
Quarter: 2012Q2

REPORT INFORMATION
  Report Type: 
  Country: None (occurrence: None)
  Receive Date: 20120518
  Receipt Date: 20120508
  Transmission Date: 20120825
  Serious: Yes (Hospitalization)
  Sender: FDA-Public Use
  Company Number: JP-PFIZER INC-2011256193

PATIENT
  Age: 77 Year
  Sex: Male

DRUGS (15)
  1. AXITINIB [Suspect]
     Dosage: 3 MG, 2X/DAY
     Route: 048
     Dates: start: 20111011, end: 20111022
  2. AXITINIB [Suspect]
     Indication: HEPATIC NEOPLASM MALIGNANT
     Dosage: 5 MG, 2X/DAY
     Route: 048
     Dates: start: 20110927, end: 20110928
  3. URIEF [Concomitant]
     Dosage: 4 MG, 1X/DAY
  4. LIVACT [Concomitant]
     Dosage: 4.15 G, 2X/DAY
  5. PROMAC D [Concomitant]
     Dosage: 75 MG, 2X/DAY
  6. TERUFIS [Concomitant]
     Indication: HEPATIC FAILURE
     Dosage: 500 ML, 1X/DAY
     Dates: start: 20110929
  7. HIRUDOID [Concomitant]
     Dosage: UNK, AS NEEDED
     Route: 061
  8. ZOLPIDEM [Concomitant]
     Dosage: 5 MG, 1X/DAY
     Dates: start: 20110610
  9. OMEPRAZOLE [Concomitant]
     Dosage: 20 MG, 1X/DAY
     Dates: start: 20110610, end: 20110926
  10. CARVEDILOL [Concomitant]
     Dosage: 10 MG, 1X/DAY
     Dates: start: 20110610
  11. FAMOTIDINE [Concomitant]
     Dosage: 20 MG, 1X/DAY
     Dates: start: 20110927
  12. PORTOLAC [Concomitant]
     Dosage: 6 G, 3X/DAY
     Dates: start: 20110929
  13. MIGLITOL [Concomitant]
     Dosage: 50 MG, 3X/DAY
  14. NORVASC [Concomitant]
     Dosage: 5 MG, 1X/DAY
     Dates: start: 20110610
  15. HEPHAS [Concomitant]
     Indication: NUTRITIONAL SUPPORT
     Dosage: 125 ML, 1X/DAY

REACTIONS (1)
  - CHOLANGITIS [None]
